FAERS Safety Report 21849455 (Version 1)
Quarter: 2023Q1

REPORT INFORMATION
  Report Type: Spontaneous
  Country: JP (occurrence: JP)
  Receive Date: 20230111
  Receipt Date: 20230111
  Transmission Date: 20230418
  Serious: Yes (Other)
  Sender: FDA-Public Use
  Company Number: JP-AJKK-JPG2020JP010907

PATIENT
  Age: 70 Year
  Sex: Male

DRUGS (5)
  1. XYLOCAINE [Suspect]
     Active Substance: LIDOCAINE HYDROCHLORIDE
     Indication: Endoscopy upper gastrointestinal tract
     Dosage: UNK
     Route: 061
  2. DIMETHICONE [Suspect]
     Active Substance: DIMETHICONE
     Indication: Endoscopy upper gastrointestinal tract
     Dosage: UNK
     Route: 048
  3. MIDAZOLAM [Concomitant]
     Active Substance: MIDAZOLAM
     Indication: Endoscopy upper gastrointestinal tract
     Dosage: UNK
     Route: 065
  4. PRONASE MS [Concomitant]
     Indication: Endoscopy upper gastrointestinal tract
     Dosage: UNK
     Route: 065
  5. SODIUM BICARBONATE [Concomitant]
     Active Substance: SODIUM BICARBONATE
     Indication: Endoscopy upper gastrointestinal tract
     Dosage: UNK
     Route: 065

REACTIONS (3)
  - Type I hypersensitivity [Recovered/Resolved]
  - Allergic reaction to excipient [Recovered/Resolved]
  - Product use in unapproved indication [Unknown]
